FAERS Safety Report 18939553 (Version 4)
Quarter: 2021Q2

REPORT INFORMATION
  Report Type: Spontaneous
  Country: US (occurrence: US)
  Receive Date: 20210224
  Receipt Date: 20210415
  Transmission Date: 20210717
  Serious: Yes (Hospitalization, Disabling)
  Sender: FDA-Public Use
  Company Number: US-ALKERMES INC.-ALK-2021-000846

PATIENT
  Age: 35 Year
  Sex: Male
  Weight: 107.94 kg

DRUGS (1)
  1. VIVITROL [Suspect]
     Active Substance: NALTREXONE
     Indication: ALCOHOLISM
     Dosage: 380 MILLIGRAM, QMO
     Route: 030
     Dates: start: 201712

REACTIONS (6)
  - Seizure [Unknown]
  - Disability [Not Recovered/Not Resolved]
  - Drug dependence [Unknown]
  - Depression [Unknown]
  - Alcoholism [Unknown]
  - Oesophageal disorder [Unknown]

NARRATIVE: CASE EVENT DATE: 20181203
